FAERS Safety Report 10409586 (Version 1)
Quarter: 2014Q3

REPORT INFORMATION
  Report Type: Spontaneous
  Country: US (occurrence: US)
  Receive Date: 20140826
  Receipt Date: 20140826
  Transmission Date: 20150326
  Serious: No
  Sender: FDA-Public Use
  Company Number: US-BAUSCH-BL-2013-004752

PATIENT
  Age: 68 Year
  Sex: Female
  Weight: 65.83 kg

DRUGS (5)
  1. CROMOLYN SODIUM NASAL SOLUTION USP [Suspect]
     Active Substance: CROMOLYN SODIUM
     Dosage: 2 SPRAYS; TWICE DAILY; LEFT NOSTRIL
     Route: 045
     Dates: start: 1991
  2. BABY ASPIRIN [Concomitant]
     Active Substance: ASPIRIN
  3. CROMOLYN SODIUM NASAL SOLUTION USP [Suspect]
     Active Substance: CROMOLYN SODIUM
     Indication: HYPERSENSITIVITY
     Dosage: 2 SPRAYS; TWICE DAILY; RIGHT NOSTRIL
     Route: 045
     Dates: start: 1991
  4. MULTIVITAMIN [Concomitant]
     Active Substance: VITAMINS
  5. CALCIUM [Concomitant]
     Active Substance: CALCIUM

REACTIONS (5)
  - Rhinorrhoea [Recovered/Resolved]
  - Oropharyngeal pain [Recovered/Resolved]
  - Ear discomfort [Recovered/Resolved]
  - Sneezing [Recovered/Resolved]
  - Cough [Recovered/Resolved]

NARRATIVE: CASE EVENT DATE: 20130717
